FAERS Safety Report 6017856-1 (Version None)
Quarter: 2008Q4

REPORT INFORMATION
  Report Type: 
  Country: None (occurrence: None)
  Receive Date: 20081223
  Receipt Date: 20081212
  Transmission Date: 20090506
  Serious: Yes (Hospitalization)
  Sender: FDA-Public Use
  Company Number: JP-MERCK-0812USA01895

PATIENT
  Age: 84 Year
  Sex: Male

DRUGS (1)
  1. TIMOPTIC-XE [Suspect]
     Indication: GLAUCOMA
     Route: 047
     Dates: start: 20081115, end: 20081115

REACTIONS (1)
  - STEVENS-JOHNSON SYNDROME [None]
